FAERS Safety Report 25896671 (Version 5)
Quarter: 2025Q4

REPORT INFORMATION
  Report Type: Report from Study
  Country: US (occurrence: US)
  Receive Date: 20251008
  Receipt Date: 20251110
  Transmission Date: 20260117
  Serious: No
  Sender: MALLINCKRODT
  Company Number: US-MALLINCKRODT-MNK202506127

PATIENT
  Sex: Male

DRUGS (1)
  1. CORTICOTROPIN [Suspect]
     Active Substance: CORTICOTROPIN
     Indication: Infantile spasms
     Dosage: UNKNOWN

REACTIONS (6)
  - Crying [Unknown]
  - Injection site haemorrhage [Unknown]
  - Irritability [Recovering/Resolving]
  - Increased appetite [Recovering/Resolving]
  - Underdose [Unknown]
  - Product contamination [Unknown]
